FAERS Safety Report 7647489-2 (Version None)
Quarter: 2011Q3

REPORT INFORMATION
  Report Type: 
  Country: None (occurrence: None)
  Receive Date: 20110801
  Receipt Date: 20110712
  Transmission Date: 20111222
  Serious: Yes (Hospitalization)
  Sender: FDA-Public Use
  Company Number: US-GLAXOSMITHKLINE-A0870170A

PATIENT
  Age: 60 Year
  Sex: Male

DRUGS (5)
  1. AVANDIA [Suspect]
     Indication: DIABETES MELLITUS
     Dosage: 4MG PER DAY
     Route: 048
     Dates: start: 20070317, end: 20080211
  2. SIMVASTATIN [Concomitant]
  3. BUPROPION HCL [Concomitant]
  4. TEMAZEPAM [Concomitant]
  5. VARDENAFIL HYDROCHLORIDE (LEVITRA) [Concomitant]

REACTIONS (3)
  - CORONARY ARTERY BYPASS [None]
  - SILENT MYOCARDIAL INFARCTION [None]
  - CARDIAC FAILURE CONGESTIVE [None]
